FAERS Safety Report 16339960 (Version 1)
Quarter: 2019Q2

REPORT INFORMATION
  Report Type: Spontaneous
  Country: US (occurrence: US)
  Receive Date: 20190521
  Receipt Date: 20190521
  Transmission Date: 20190711
  Serious: No
  Sender: FDA-Public Use
  Company Number: US-009507513-1905USA009032

PATIENT
  Age: 17 Year
  Sex: Female
  Weight: 43.08 kg

DRUGS (1)
  1. NEXPLANON [Suspect]
     Active Substance: ETONOGESTREL
     Indication: CONTRACEPTION
     Dosage: 1 DOSAGE FORM, 3 YEAR IMPLANT, IMPLANT IN LEFT ARM
     Route: 059
     Dates: start: 20190312

REACTIONS (2)
  - Menstruation delayed [Not Recovered/Not Resolved]
  - Menorrhagia [Not Recovered/Not Resolved]

NARRATIVE: CASE EVENT DATE: 2019
